FAERS Safety Report 6941121-9 (Version None)
Quarter: 2010Q3

REPORT INFORMATION
  Report Type: 
  Country: None (occurrence: None)
  Receive Date: 20100825
  Receipt Date: 20100505
  Transmission Date: 20110219
  Serious: No
  Sender: FDA-Public Use
  Company Number: US-BRISTOL-MYERS SQUIBB COMPANY-15091358

PATIENT
  Age: 82 Year
  Sex: Male
  Weight: 69 kg

DRUGS (4)
  1. ONGLYZA [Suspect]
     Indication: DIABETES MELLITUS
     Dates: start: 20100401
  2. AMARYL [Concomitant]
  3. ATENOLOL [Concomitant]
  4. PEPCID [Concomitant]

REACTIONS (2)
  - HEADACHE [None]
  - RASH MACULAR [None]
